FAERS Safety Report 10753456 (Version 1)
Quarter: 2015Q1

REPORT INFORMATION
  Report Type: Spontaneous
  Country: CH (occurrence: None)
  Receive Date: 20150129
  Receipt Date: 20150129
  Transmission Date: 20150721
  Serious: Yes (Hospitalization)
  Sender: FDA-Public Use
  Company Number: CH-20150004

PATIENT
  Age: 44 Year
  Sex: Female
  Weight: 63 kg

DRUGS (1)
  1. DOTAREM [Suspect]
     Active Substance: GADOTERATE MEGLUMINE
     Indication: NUCLEAR MAGNETIC RESONANCE IMAGING
     Dosage: NOT OTHERWISE SPECIFIED
     Route: 042
     Dates: start: 20150115, end: 20150115

REACTIONS (2)
  - Syncope [None]
  - Blood pressure decreased [None]

NARRATIVE: CASE EVENT DATE: 20150115
